FAERS Safety Report 10234712 (Version 1)
Quarter: 2014Q2

REPORT INFORMATION
  Report Type: Spontaneous
  Country: FR (occurrence: FR)
  Receive Date: 20140613
  Receipt Date: 20140613
  Transmission Date: 20141212
  Serious: Yes (Hospitalization)
  Sender: FDA-Public Use
  Company Number: FR-ROCHE-1412833

PATIENT
  Age: 16 Year
  Sex: Male

DRUGS (6)
  1. CELLCEPT [Suspect]
     Indication: PRODUCT USED FOR UNKNOWN INDICATION
     Route: 065
     Dates: start: 20140224
  2. CELLCEPT [Suspect]
     Route: 065
     Dates: start: 20140414
  3. RIFADINE [Concomitant]
  4. DELURSAN [Concomitant]
  5. ENTOCORT [Concomitant]
  6. CREON [Concomitant]

REACTIONS (7)
  - General physical health deterioration [Recovered/Resolved]
  - Headache [Recovered/Resolved]
  - Vertigo [Recovered/Resolved]
  - Abdominal pain [Recovered/Resolved]
  - Cholestasis [Recovered/Resolved]
  - Anaemia [Recovered/Resolved]
  - Hyperbilirubinaemia [Recovered/Resolved]
